FAERS Safety Report 7454888-0 (Version None)
Quarter: 2011Q1

REPORT INFORMATION
  Report Type: 
  Country: None (occurrence: None)
  Receive Date: 20110302
  Receipt Date: 20110111
  Transmission Date: 20110831
  Serious: No
  Sender: FDA-Public Use
  Company Number: 025200

PATIENT
  Sex: Female
  Weight: 104.5 kg

DRUGS (6)
  1. ERGOCALCIFEROL [Concomitant]
  2. PREDNISONE [Concomitant]
  3. DIOVAN [Concomitant]
  4. CETIRIZINE HCL [Concomitant]
  5. CIMZIA [Suspect]
     Indication: RHEUMATOID ARTHRITIS
     Dosage: (SUBCUTANEOUS)
     Route: 058
     Dates: start: 20101223
  6. METFORMIN HCL [Concomitant]

REACTIONS (4)
  - INJECTION SITE REACTION [None]
  - MUSCLE SPASMS [None]
  - INJECTION SITE PRURITUS [None]
  - INJECTION SITE ERYTHEMA [None]
